FAERS Safety Report 18393717 (Version 1)
Quarter: 2020Q4

REPORT INFORMATION
  Report Type: Spontaneous
  Country: US (occurrence: US)
  Receive Date: 20201016
  Receipt Date: 20201016
  Transmission Date: 20210114
  Serious: Yes (Death, Other)
  Sender: FDA-Public Use
  Company Number: US-PURDUE-USA-2020-0171038

PATIENT
  Sex: Female

DRUGS (1)
  1. OXYCONTIN [Suspect]
     Active Substance: OXYCODONE HYDROCHLORIDE
     Indication: RESPIRATORY THERAPY
     Route: 048

REACTIONS (7)
  - Drug dependence [Unknown]
  - Asphyxia [Unknown]
  - Fall [Unknown]
  - Adverse reaction [Unknown]
  - Dyspnoea [Unknown]
  - Lung disorder [Unknown]
  - Asthma [Fatal]

NARRATIVE: CASE EVENT DATE: 2013
